FAERS Safety Report 11927951 (Version 2)
Quarter: 2016Q1

REPORT INFORMATION
  Report Type: Report from Study
  Country: AU (occurrence: AU)
  Receive Date: 20160119
  Receipt Date: 20160128
  Transmission Date: 20160526
  Serious: Yes (Hospitalization, Other)
  Sender: FDA-Public Use
  Company Number: AU-GILEAD-2016-0191441

PATIENT
  Sex: Female

DRUGS (19)
  1. AMITRIPTYLINE [Concomitant]
     Active Substance: AMITRIPTYLINE
  2. CALTRATE                           /00944201/ [Concomitant]
  3. NORDIP [Concomitant]
  4. SPIRONOLACTONE. [Concomitant]
     Active Substance: SPIRONOLACTONE
  5. NEXIUM [Concomitant]
     Active Substance: ESOMEPRAZOLE MAGNESIUM
  6. IDELALISIB [Suspect]
     Active Substance: IDELALISIB
     Indication: CHRONIC LYMPHOCYTIC LEUKAEMIA
     Dosage: UNK
     Route: 065
     Dates: start: 20151028, end: 20151203
  7. PANAMAX                            /00020001/ [Concomitant]
  8. VAGIFEM [Concomitant]
     Active Substance: ESTRADIOL
  9. GEMFIBROZIL. [Concomitant]
     Active Substance: GEMFIBROZIL
  10. METOPROLOL. [Concomitant]
     Active Substance: METOPROLOL
  11. THYROXINE [Concomitant]
     Active Substance: LEVOTHYROXINE
  12. HYDROZOLE [Concomitant]
     Active Substance: CLOTRIMAZOLE\HYDROCORTISONE
  13. ISOPHANE INSULIN [Concomitant]
     Active Substance: INSULIN NOS
  14. ATORVASTATIN [Concomitant]
     Active Substance: ATORVASTATIN
  15. NOVORAPID [Concomitant]
     Active Substance: INSULIN ASPART
  16. ALLOPURINOL. [Concomitant]
     Active Substance: ALLOPURINOL
  17. RITUXIMAB [Concomitant]
     Active Substance: RITUXIMAB
     Indication: CHRONIC LYMPHOCYTIC LEUKAEMIA
     Route: 065
  18. METFORMIN [Concomitant]
     Active Substance: METFORMIN HYDROCHLORIDE
  19. NUPENTIN [Concomitant]

REACTIONS (5)
  - Pneumonia [Recovered/Resolved]
  - Pyrexia [Unknown]
  - Atelectasis [Unknown]
  - Pneumonitis [Unknown]
  - Bronchitis [Unknown]

NARRATIVE: CASE EVENT DATE: 201512
